FAERS Safety Report 6435044-1 (Version None)
Quarter: 2009Q4

REPORT INFORMATION
  Report Type: 
  Country: None (occurrence: None)
  Receive Date: 20091110
  Receipt Date: 20091105
  Transmission Date: 20100525
  Serious: No
  Sender: FDA-Public Use
  Company Number: GB-JNJFOC-20091008281

PATIENT
  Age: 31 Year
  Sex: Male

DRUGS (4)
  1. DURAGESIC-100 [Suspect]
     Indication: RECTAL ABSCESS
     Route: 062
  2. ARIPIPRAZOLE [Concomitant]
     Indication: PSYCHOTIC DISORDER
     Route: 048
  3. SERTRALINE HCL [Concomitant]
     Indication: DEPRESSION
     Route: 048
  4. DIAZEPAM [Concomitant]
     Indication: DEPENDENCE
     Route: 048

REACTIONS (4)
  - DRUG DIVERSION [None]
  - DRUG INEFFECTIVE [None]
  - INAPPROPRIATE SCHEDULE OF DRUG ADMINISTRATION [None]
  - OFF LABEL USE [None]
